FAERS Safety Report 7007263-7 (Version None)
Quarter: 2010Q3

REPORT INFORMATION
  Report Type: 
  Country: None (occurrence: None)
  Receive Date: 20100922
  Receipt Date: 20100909
  Transmission Date: 20110219
  Serious: Yes (Hospitalization)
  Sender: FDA-Public Use
  Company Number: PHHY2010MX59634

PATIENT
  Sex: Female

DRUGS (6)
  1. DIOVAN [Suspect]
     Indication: HYPERTENSION
     Dosage: 1 TABLET (160 MG ) PER DAY
  2. METFORMIN [Concomitant]
     Indication: DIABETES MELLITUS
     Dosage: 2 TABLETS PER DAY
  3. TENORMIN [Concomitant]
     Indication: BLOOD PRESSURE
     Dosage: 1 TABLET PER DAY
  4. DABIGATRAN ETEXILATE [Concomitant]
     Indication: THROMBOSIS
     Dosage: 2 TABLETS PER DAY
  5. INHIBITRON [Concomitant]
     Dosage: 1 TABLET PER DAY
  6. INSULINE [Concomitant]
     Indication: DIABETES MELLITUS

REACTIONS (3)
  - FALL [None]
  - LOWER LIMB FRACTURE [None]
  - SURGERY [None]
